FAERS Safety Report 15652144 (Version 6)
Quarter: 2023Q4

REPORT INFORMATION
  Report Type: Spontaneous
  Country: US (occurrence: US)
  Receive Date: 20181123
  Receipt Date: 20231127
  Transmission Date: 20240110
  Serious: Yes (Other)
  Sender: FDA-Public Use
  Company Number: US-GILEAD-2018-0376094

PATIENT
  Sex: Male
  Weight: 72.562 kg

DRUGS (76)
  1. ATRIPLA [Suspect]
     Active Substance: EFAVIRENZ\EMTRICITABINE\TENOFOVIR DISOPROXIL FUMARATE
     Indication: HIV infection
     Dosage: UNK
     Route: 048
     Dates: start: 200902, end: 20160115
  2. STRIBILD [Suspect]
     Active Substance: COBICISTAT\ELVITEGRAVIR\EMTRICITABINE\TENOFOVIR DISOPROXIL FUMARATE
     Indication: HIV infection
     Dosage: UNK
     Route: 048
     Dates: start: 201601, end: 201603
  3. VENLAFAXINE [Concomitant]
     Active Substance: VENLAFAXINE HYDROCHLORIDE
  4. FLUTICASONE [Concomitant]
     Active Substance: FLUTICASONE
  5. VITAMIN D NOS [Concomitant]
     Active Substance: VITAMIN D NOS
  6. GENVOYA [Concomitant]
     Active Substance: COBICISTAT\ELVITEGRAVIR\EMTRICITABINE\TENOFOVIR ALAFENAMIDE FUMARATE
  7. TRIUMEQ [Concomitant]
     Active Substance: ABACAVIR SULFATE\DOLUTEGRAVIR SODIUM\LAMIVUDINE
  8. ASPIRIN [Concomitant]
     Active Substance: ASPIRIN
  9. CEFTRIAXONE [Concomitant]
     Active Substance: CEFTRIAXONE\CEFTRIAXONE SODIUM
  10. CEFAZOLIN [Concomitant]
     Active Substance: CEFAZOLIN
  11. MINERALS\VITAMINS [Concomitant]
     Active Substance: MINERALS\VITAMINS
  12. CETIRIZINE HYDROCHLORIDE [Concomitant]
     Active Substance: CETIRIZINE HYDROCHLORIDE
  13. CHANTIX [Concomitant]
     Active Substance: VARENICLINE TARTRATE
  14. CIALIS [Concomitant]
     Active Substance: TADALAFIL
  15. CLINDAMYCIN [Concomitant]
     Active Substance: CLINDAMYCIN
  16. CLONIDINE [Concomitant]
     Active Substance: CLONIDINE
  17. CYCLOBENZAPRINE [Concomitant]
     Active Substance: CYCLOBENZAPRINE
  18. CYMBALTA [Concomitant]
     Active Substance: DULOXETINE HYDROCHLORIDE
  19. DIAZEPAM [Concomitant]
     Active Substance: DIAZEPAM
  20. DILAUDID [Concomitant]
     Active Substance: HYDROMORPHONE HYDROCHLORIDE
  21. DOXYCYCLINE HYCLATE [Concomitant]
     Active Substance: DOXYCYCLINE HYCLATE
  22. DRONABINOL [Concomitant]
     Active Substance: DRONABINOL
  23. ESOMEPRAZOLE [Concomitant]
     Active Substance: ESOMEPRAZOLE
  24. FAMOTIDINE [Concomitant]
     Active Substance: FAMOTIDINE
  25. FENTANYL [Concomitant]
     Active Substance: FENTANYL\FENTANYL CITRATE
  26. FLONASE [Concomitant]
     Active Substance: FLUTICASONE PROPIONATE
  27. GABAPENTIN [Concomitant]
     Active Substance: GABAPENTIN
  28. HYDROXYZINE HYDROCHLORIDE [Concomitant]
     Active Substance: HYDROXYZINE HYDROCHLORIDE
  29. IBUPROFEN [Concomitant]
     Active Substance: IBUPROFEN
  30. LATANOPROST [Concomitant]
     Active Substance: LATANOPROST
  31. MARINOL [Concomitant]
     Active Substance: DRONABINOL
  32. METHYLPREDNISOLONE [Concomitant]
     Active Substance: METHYLPREDNISOLONE
  33. MIRTAZAPINE [Concomitant]
     Active Substance: MIRTAZAPINE
  34. MOMETASONE [Concomitant]
     Active Substance: MOMETASONE
  35. MORPHINE [Concomitant]
     Active Substance: MORPHINE
  36. MYRBETRIQ [Concomitant]
     Active Substance: MIRABEGRON
  37. NEXIUM I.V. [Concomitant]
     Active Substance: ESOMEPRAZOLE SODIUM
  38. NICOTINE [Concomitant]
     Active Substance: NICOTINE
  39. NYSTATIN [Concomitant]
     Active Substance: NYSTATIN
  40. ONDANSETRON [Concomitant]
     Active Substance: ONDANSETRON
  41. OTEZLA [Concomitant]
     Active Substance: APREMILAST
  42. OXYBUTYNIN [Concomitant]
     Active Substance: OXYBUTYNIN
  43. OXYCODONE [Concomitant]
     Active Substance: OXYCODONE
  44. PANTOPRAZOLE [Concomitant]
     Active Substance: PANTOPRAZOLE
  45. PROCARBAZINE [Concomitant]
     Active Substance: PROCARBAZINE
  46. VINCRISTINE [Concomitant]
     Active Substance: VINCRISTINE
  47. LOMUSTINE [Concomitant]
     Active Substance: LOMUSTINE
  48. PROPYLENE GLYCOL [Concomitant]
     Active Substance: PROPYLENE GLYCOL
  49. PREDNISONE [Concomitant]
     Active Substance: PREDNISONE
  50. SUMATRIPTAN [Concomitant]
     Active Substance: SUMATRIPTAN
  51. TOLTERODINE TARTRATE [Concomitant]
     Active Substance: TOLTERODINE TARTRATE
  52. TRAMADOL [Concomitant]
     Active Substance: TRAMADOL\TRAMADOL HYDROCHLORIDE
  53. TRAVATAN [Concomitant]
     Active Substance: TRAVOPROST
  54. TYLENOL [Concomitant]
     Active Substance: ACETAMINOPHEN
  55. ZANTAC [Concomitant]
     Active Substance: RANITIDINE HYDROCHLORIDE
  56. ATENOLOL [Concomitant]
     Active Substance: ATENOLOL
  57. AZITHROMYCIN [Concomitant]
     Active Substance: AZITHROMYCIN
  58. BECLOMETHASONE [Concomitant]
     Active Substance: BECLOMETHASONE
  59. BICILLINE [Concomitant]
  60. MINOCYCLINE [Concomitant]
     Active Substance: MINOCYCLINE HYDROCHLORIDE
  61. SULFASALAZINE [Concomitant]
     Active Substance: SULFASALAZINE
  62. AMOXICILLIN [Concomitant]
     Active Substance: AMOXICILLIN
  63. PENICILLIN V POTASSIUM [Concomitant]
     Active Substance: PENICILLIN V POTASSIUM
  64. CEPHALEXIN [Concomitant]
     Active Substance: CEPHALEXIN
  65. VIAGRA [Concomitant]
     Active Substance: SILDENAFIL CITRATE
  66. TRETINOIN [Concomitant]
     Active Substance: TRETINOIN
  67. MENACTRA [Concomitant]
     Active Substance: NEISSERIA MENINGITIDIS GROUP A CAPSULAR POLYSACCHARIDE DIPHTHERIA TOXOID CONJUGATE ANTIGEN\NEISSERIA
  68. ERGOCALCIFEROL [Concomitant]
     Active Substance: ERGOCALCIFEROL
  69. CHLORHEXIDINE [Concomitant]
     Active Substance: CHLORHEXIDINE\CHLORHEXIDINE GLUCONATE
  70. AMMONIUM LACTATE [Concomitant]
     Active Substance: AMMONIUM LACTATE
  71. ALEVE [Concomitant]
     Active Substance: NAPROXEN SODIUM
  72. AFLURIA NOS [Concomitant]
     Active Substance: INFLUENZA VIRUS VACCINE TRIVALENT TYPE A+B AFLURIA
  73. ADAPALENE [Concomitant]
     Active Substance: ADAPALENE
  74. ZOFRAN [Concomitant]
     Active Substance: ONDANSETRON HYDROCHLORIDE
  75. ZYRTEC [Concomitant]
     Active Substance: CETIRIZINE HYDROCHLORIDE
  76. OMEPRAZOLE [Concomitant]
     Active Substance: OMEPRAZOLE

REACTIONS (11)
  - Osteoporosis [Unknown]
  - Chronic kidney disease [Not Recovered/Not Resolved]
  - Renal impairment [Not Recovered/Not Resolved]
  - Bone demineralisation [Unknown]
  - Renal disorder [Unknown]
  - Pain [Unknown]
  - Emotional distress [Unknown]
  - Anxiety [Unknown]
  - Anhedonia [Unknown]
  - Economic problem [Unknown]
  - Anaemia [Not Recovered/Not Resolved]

NARRATIVE: CASE EVENT DATE: 20160101
